FAERS Safety Report 9011070 (Version 1)
Quarter: 2013Q1

REPORT INFORMATION
  Report Type: Spontaneous
  Country: TH (occurrence: TH)
  Receive Date: 20130109
  Receipt Date: 20130109
  Transmission Date: 20140127
  Serious: Yes (Other)
  Sender: FDA-Public Use
  Company Number: TH-GLAXOSMITHKLINE-B0857470A

PATIENT
  Age: 58 Year
  Sex: Female
  Weight: 61 kg

DRUGS (2)
  1. TYKERB [Suspect]
     Indication: BREAST CANCER METASTATIC
     Dates: start: 20121004
  2. TRASTUZUMAB [Concomitant]
     Indication: BREAST CANCER METASTATIC
     Dosage: 150MG PER DAY
     Route: 042
     Dates: start: 20121222

REACTIONS (1)
  - Hypothyroidism [Recovering/Resolving]
